FAERS Safety Report 7963460-5 (Version None)
Quarter: 2011Q4

REPORT INFORMATION
  Report Type: 
  Country: None (occurrence: None)
  Receive Date: 20111208
  Receipt Date: 20111129
  Transmission Date: 20120403
  Serious: Yes (Death, Hospitalization, Other)
  Sender: FDA-Public Use
  Company Number: US-BAYER-200940678NA

PATIENT
  Age: 63 Year
  Sex: Male
  Weight: 89 kg

DRUGS (24)
  1. LABETALOL HCL [Concomitant]
     Dosage: 100 MG, UNK
     Route: 048
     Dates: start: 20070328
  2. FENTANYL-100 [Concomitant]
     Dosage: UNK
     Route: 042
     Dates: start: 20070424
  3. BUMEX [Concomitant]
     Dosage: UNK
     Route: 042
     Dates: start: 20070424
  4. RED BLOOD CELLS, CONCENTRATED [Concomitant]
     Dosage: UNK
     Dates: start: 20070424
  5. CARDIOPLEGIA [Concomitant]
  6. CONTRAST MEDIA [Concomitant]
     Indication: ARTERIOGRAM CORONARY
  7. LEVAQUIN [Concomitant]
     Dosage: 200 MG, QD
  8. ASPIRIN [Concomitant]
     Dosage: 325 MG
     Route: 048
  9. CORDARONE [Concomitant]
     Dosage: 200 MG, BID
     Route: 048
  10. PROTAMINE SULFATE [Concomitant]
  11. TRASYLOL [Suspect]
     Indication: AORTIC VALVE REPLACEMENT
     Dosage: LOADING DOSE: 200CC FOLLOWED BY 50CC/HR
     Route: 042
     Dates: start: 20070424, end: 20070424
  12. CONTRAST MEDIA [Concomitant]
     Indication: ANGIOGRAM
  13. CHANTIX [Concomitant]
     Dosage: 1 MG, BID
     Route: 048
  14. HEPARIN [Concomitant]
     Dosage: UNK
     Route: 042
     Dates: start: 20070424
  15. DIOVAN [Concomitant]
     Dosage: 12.5 MG, BID
     Route: 048
  16. CONTRAST MEDIA [Concomitant]
     Indication: CATHETERISATION CARDIAC
     Dosage: UNK
     Dates: start: 20070328
  17. CONTRAST MEDIA [Concomitant]
     Indication: CARDIAC VENTRICULOGRAM LEFT
  18. PLASMA [Concomitant]
     Dosage: UNK
     Dates: start: 20070427
  19. ANTIVERT [Concomitant]
     Dosage: 25 MG, TID
     Route: 048
  20. FLONASE [Concomitant]
     Route: 048
  21. TRASYLOL [Suspect]
     Dosage: TEST DOSE: 1ML
  22. NAPROSYN [Concomitant]
     Dosage: 550 MG, BID
     Route: 048
  23. LEVAQUIN [Concomitant]
     Dosage: 500 MG, FIRST DAY
     Dates: start: 20070508
  24. DOPAMINE HCL [Concomitant]
     Indication: BLOOD PRESSURE MANAGEMENT

REACTIONS (13)
  - STRESS [None]
  - ANXIETY [None]
  - UNEVALUABLE EVENT [None]
  - FEAR [None]
  - MULTI-ORGAN FAILURE [None]
  - RENAL IMPAIRMENT [None]
  - RENAL INJURY [None]
  - RENAL FAILURE [None]
  - EMOTIONAL DISTRESS [None]
  - ANHEDONIA [None]
  - PAIN [None]
  - DEATH [None]
  - INJURY [None]
